FAERS Safety Report 7821545-8 (Version None)
Quarter: 2011Q4

REPORT INFORMATION
  Report Type: 
  Country: None (occurrence: None)
  Receive Date: 20111018
  Receipt Date: 20110516
  Transmission Date: 20120403
  Serious: No
  Sender: FDA-Public Use
  Company Number: US-ASTRAZENECA-2011SE29600

PATIENT
  Age: 82 Year
  Sex: Male
  Weight: 22.7 kg

DRUGS (2)
  1. PREDNISONE [Concomitant]
  2. SYMBICORT [Suspect]
     Indication: CHRONIC OBSTRUCTIVE PULMONARY DISEASE
     Dosage: 1 PUFF BID
     Route: 055

REACTIONS (2)
  - GLOSSODYNIA [None]
  - STOMATITIS [None]
